FAERS Safety Report 7063468-0 (Version None)
Quarter: 2010Q4

REPORT INFORMATION
  Report Type: 
  Country: None (occurrence: None)
  Receive Date: 20101026
  Receipt Date: 20100401
  Transmission Date: 20110411
  Serious: No
  Sender: FDA-Public Use
  Company Number: US-ABBOTT-10P-163-0636990-00

PATIENT
  Sex: Female

DRUGS (3)
  1. LUPRON DEPOT [Suspect]
     Indication: PRODUCT USED FOR UNKNOWN INDICATION
  2. ADD-BACK THERAPY [Suspect]
     Indication: PROPHYLAXIS
  3. ADD-BACK THERAPY [Suspect]
     Indication: ADVERSE DRUG REACTION

REACTIONS (1)
  - RASH [None]
